FAERS Safety Report 13217046 (Version 1)
Quarter: 2017Q1

REPORT INFORMATION
  Report Type: Other
  Country: US (occurrence: US)
  Receive Date: 20170210
  Receipt Date: 20170210
  Transmission Date: 20170428
  Serious: No
  Sender: FDA-Public Use
  Company Number: US-ACORDA-ACO_124877_2016

PATIENT
  Sex: Male

DRUGS (1)
  1. AMPYRA [Suspect]
     Active Substance: DALFAMPRIDINE
     Indication: PRODUCT USED FOR UNKNOWN INDICATION
     Dosage: UNK
     Route: 065

REACTIONS (7)
  - Ataxia [Unknown]
  - Diarrhoea [Unknown]
  - Hypertension [Unknown]
  - Gait disturbance [Unknown]
  - Dysstasia [Unknown]
  - Cognitive disorder [Unknown]
  - Autonomic nervous system imbalance [Unknown]
